FAERS Safety Report 19402119 (Version 1)
Quarter: 2021Q2

REPORT INFORMATION
  Report Type: Spontaneous
  Country: FR (occurrence: FR)
  Receive Date: 20210611
  Receipt Date: 20210611
  Transmission Date: 20210717
  Serious: Yes (Hospitalization, Other)
  Sender: FDA-Public Use
  Company Number: FR-AUROBINDO-AUR-APL-2014-10105

PATIENT
  Age: 47 Year
  Sex: Female

DRUGS (3)
  1. PARACETAMOL [Suspect]
     Active Substance: ACETAMINOPHEN
     Indication: INFLUENZA LIKE ILLNESS
     Dosage: UNK
     Route: 065
  2. TETRAZEPAM [Suspect]
     Active Substance: TETRAZEPAM
     Indication: INFLUENZA LIKE ILLNESS
     Dosage: UNK
     Route: 065
  3. IBUPROFEN. [Suspect]
     Active Substance: IBUPROFEN
     Indication: INFLUENZA LIKE ILLNESS
     Dosage: UNK
     Route: 065

REACTIONS (18)
  - Cholestasis [Unknown]
  - Hypoxia [Unknown]
  - Neutrophilia [Unknown]
  - Encephalitis [Unknown]
  - C-reactive protein increased [Unknown]
  - Blister [Unknown]
  - Acute kidney injury [Not Recovered/Not Resolved]
  - Myocarditis [Unknown]
  - Haemodynamic instability [Unknown]
  - Dyspnoea [Unknown]
  - Acute generalised exanthematous pustulosis [Recovered/Resolved with Sequelae]
  - Cardiac failure [Not Recovered/Not Resolved]
  - Mumps [Unknown]
  - Cardiogenic shock [Unknown]
  - Papilloedema [Unknown]
  - Pustule [Unknown]
  - Hepatic cytolysis [Unknown]
  - Erythema [Unknown]
